FAERS Safety Report 4349578-7 (Version None)
Quarter: 2004Q1

REPORT INFORMATION
  Report Type: 
  Country: None (occurrence: None)
  Receive Date: 20040329
  Receipt Date: 20031203
  Transmission Date: 20041129
  Serious: No
  Sender: FDA-Public Use
  Company Number: USA031253924

PATIENT
  Age: 13 Year
  Sex: Female
  Weight: 66 kg

DRUGS (3)
  1. STRATTERA [Suspect]
     Indication: ATTENTION DEFICIT/HYPERACTIVITY DISORDER
     Dosage: 120 MG/IN THE MORNING
  2. AMITRIPTYLINE HCL [Concomitant]
  3. SINGULAIR [Concomitant]

REACTIONS (1)
  - PRESCRIBED OVERDOSE [None]
